FAERS Safety Report 16584035 (Version 1)
Quarter: 2019Q3

REPORT INFORMATION
  Report Type: Report from Study
  Country: IE (occurrence: IE)
  Receive Date: 20190717
  Receipt Date: 20190717
  Transmission Date: 20191004
  Serious: Yes (Other)
  Sender: FDA-Public Use
  Company Number: IE-BRISTOL-MYERS SQUIBB COMPANY-BMS-2018-124924

PATIENT
  Age: 30 Year
  Sex: Female

DRUGS (7)
  1. INSULIN DETEMIR [Suspect]
     Active Substance: INSULIN DETEMIR
     Indication: GESTATIONAL DIABETES
     Dosage: 11 INTERNATIONAL UNIT
     Route: 058
     Dates: start: 20180328
  2. BLINDED GLYBURIDE,METFORMIN HYDROCHLORIDE [Suspect]
     Active Substance: GLYBURIDE\METFORMIN HYDROCHLORIDE
     Indication: GESTATIONAL DIABETES
     Dosage: 2500 MILLIGRAM, BID
     Route: 048
     Dates: start: 20180207
  3. BLINDED GLYBURIDE,METFORMIN HYDROCHLORIDE [Suspect]
     Active Substance: GLYBURIDE\METFORMIN HYDROCHLORIDE
     Indication: GESTATIONAL DIABETES
     Dosage: 2500 MILLIGRAM, BID
     Route: 048
     Dates: start: 20180207
  4. BLINDED METFORMIN HYDROCHLORIDE [Suspect]
     Active Substance: METFORMIN HYDROCHLORIDE
     Indication: GESTATIONAL DIABETES
     Dosage: 2500 MILLIGRAM, BID
     Route: 048
     Dates: start: 20180207
  5. BLINDED METFORMIN HYDROCHLORIDE [Suspect]
     Active Substance: METFORMIN HYDROCHLORIDE
     Indication: GESTATIONAL DIABETES
     Dosage: 2500 MILLIGRAM, BID
     Route: 048
     Dates: start: 20180207
  6. BLINDED METFORMIN HYDROCHLORIDE [Suspect]
     Active Substance: METFORMIN HYDROCHLORIDE
     Indication: GESTATIONAL DIABETES
     Dosage: 2500 MILLIGRAM, BID
     Route: 048
     Dates: start: 20180207
  7. BLINDED METFORMIN HYDROCHLORIDE [Suspect]
     Active Substance: METFORMIN HYDROCHLORIDE
     Indication: GESTATIONAL DIABETES
     Dosage: 2500 MILLIGRAM, BID
     Route: 048
     Dates: start: 20180207

REACTIONS (3)
  - Live birth [Unknown]
  - Maternal exposure during pregnancy [Recovered/Resolved]
  - Gestational hypertension [Unknown]

NARRATIVE: CASE EVENT DATE: 201805
